FAERS Safety Report 4850825-3 (Version None)
Quarter: 2005Q4

REPORT INFORMATION
  Report Type: 
  Country: None (occurrence: None)
  Receive Date: 20051208
  Receipt Date: 20051125
  Transmission Date: 20060501
  Serious: Yes (Hospitalization, Disabling, Other)
  Sender: FDA-Public Use
  Company Number: 2005160705

PATIENT
  Age: 60 Year
  Sex: Male
  Weight: 90.7194 kg

DRUGS (7)
  1. LYRICA [Suspect]
     Indication: MYELITIS
     Dosage: 600 MG (300 MG, 2 IN 1 D),
     Dates: start: 20050101
  2. VALIUM [Concomitant]
  3. BACLOFEN [Concomitant]
  4. METHADONE HCL [Concomitant]
  5. MORPHINE [Concomitant]
  6. DILAUDID [Concomitant]
  7. OPIOIDS (OPIOIDS) [Concomitant]

REACTIONS (3)
  - JOINT SWELLING [None]
  - NERVE INJURY [None]
  - PARALYSIS [None]
